FAERS Safety Report 4603629-0 (Version None)
Quarter: 2005Q1

REPORT INFORMATION
  Report Type: 
  Country: None (occurrence: None)
  Receive Date: 20050310
  Receipt Date: 20050228
  Transmission Date: 20050727
  Serious: Yes (Other)
  Sender: FDA-Public Use
  Company Number: PHHO2005US03605

PATIENT
  Age: 54 Year
  Sex: Male

DRUGS (10)
  1. CYCLOSPORINE [Suspect]
     Indication: LIVER TRANSPLANT
     Dosage: 175 MG, BID
     Route: 048
     Dates: start: 20050218
  2. CYCLOSPORINE [Suspect]
     Dosage: 500 MG, BID
     Route: 048
     Dates: start: 20050215
  3. MYCOPHENOLATE MOFETIL [Concomitant]
     Indication: LIVER TRANSPLANT
     Dosage: 1 G, BID
     Route: 048
     Dates: start: 20050205, end: 20050216
  4. MYCOPHENOLATE MOFETIL [Concomitant]
     Dosage: 1.5 G, BID
     Route: 048
     Dates: start: 20050216, end: 20050217
  5. PREDNISONE [Concomitant]
     Indication: LIVER TRANSPLANT
     Dosage: 15 MG DAILY DOSE
     Route: 048
     Dates: start: 20050214
  6. ACYCLOVIR [Concomitant]
     Dosage: 800 MG, TID
     Route: 048
     Dates: start: 20050217
  7. FLUCONAZOLE [Concomitant]
     Dosage: 200 MG DAILY DOSE
     Route: 048
     Dates: start: 20050206
  8. ASPIRIN [Concomitant]
     Dosage: 81 MG DAILY DOSE
     Route: 048
     Dates: start: 20050206
  9. OSCAL [Concomitant]
     Dosage: 500 MG DAILY DOSE
     Route: 048
     Dates: start: 20050210
  10. QUETIAPINE FUMARATE [Concomitant]
     Dosage: 25 MG, QHS
     Route: 048
     Dates: start: 20050215

REACTIONS (6)
  - BLOOD BILIRUBIN INCREASED [None]
  - BLOOD CREATININE INCREASED [None]
  - CHOLESTASIS [None]
  - LIVER FUNCTION TEST ABNORMAL [None]
  - LIVER TRANSPLANT REJECTION [None]
  - NEPHROPATHY TOXIC [None]
